FAERS Safety Report 8297046-2 (Version None)
Quarter: 2012Q2

REPORT INFORMATION
  Report Type: 
  Country: None (occurrence: None)
  Receive Date: 20120417
  Receipt Date: 20120417
  Transmission Date: 20120825
  Serious: Yes (Other)
  Sender: FDA-Public Use
  Company Number: None

PATIENT
  Sex: Male

DRUGS (1)
  1. RIBAVIRIN [Suspect]
     Indication: HEPATITIS C
     Dosage: 600MG BID PO
     Route: 048
     Dates: start: 20120130, end: 20120401

REACTIONS (7)
  - NAIL DISORDER [None]
  - ULCER [None]
  - URINE OUTPUT INCREASED [None]
  - RENAL PAIN [None]
  - INFLUENZA LIKE ILLNESS [None]
  - DYSPNOEA [None]
  - CHEST DISCOMFORT [None]
